FAERS Safety Report 8406302-6 (Version None)
Quarter: 2012Q2

REPORT INFORMATION
  Report Type: 
  Country: None (occurrence: None)
  Receive Date: 20120604
  Receipt Date: 20120526
  Transmission Date: 20120825
  Serious: Yes (Hospitalization)
  Sender: FDA-Public Use
  Company Number: US-BAYER-2011-070795

PATIENT
  Age: 23 Year
  Sex: Female
  Weight: 80.72 kg

DRUGS (6)
  1. PERCOCET [Concomitant]
     Dosage: 5-325 Q4H PRN, UNK
  2. PROMETHAZINE [Concomitant]
     Dosage: 25 MG, Q 6H PRN
  3. YASMIN [Suspect]
     Indication: PRODUCT USED FOR UNKNOWN INDICATION
     Dosage: UNK
     Route: 048
     Dates: start: 20040101, end: 20070201
  4. METFORMIN HCL [Concomitant]
     Indication: POLYCYSTIC OVARIES
     Dosage: 500 MG, QD
     Dates: start: 20000101, end: 20110101
  5. METFORMIN HCL [Concomitant]
     Dosage: 500 MG, EVERY DAY, UNK
  6. OXYCODONE HYDROCHLORIDE [Concomitant]
     Dosage: 5 MG, QID

REACTIONS (4)
  - CHOLECYSTITIS ACUTE [None]
  - PAIN [None]
  - NAUSEA [None]
  - GALLBLADDER DISORDER [None]
